FAERS Safety Report 23989535 (Version 2)
Quarter: 2025Q1

REPORT INFORMATION
  Report Type: Spontaneous
  Country: US (occurrence: US)
  Receive Date: 20240619
  Receipt Date: 20250115
  Transmission Date: 20250409
  Serious: No
  Sender: PFIZER
  Company Number: US-PFIZER INC-PV202400044155

PATIENT

DRUGS (1)
  1. GENOTROPIN [Suspect]
     Active Substance: SOMATROPIN

REACTIONS (1)
  - Device physical property issue [Unknown]
